FAERS Safety Report 4302004-6 (Version None)
Quarter: 2004Q1

REPORT INFORMATION
  Report Type: 
  Country: None (occurrence: None)
  Receive Date: 20040217
  Receipt Date: 20031119
  Transmission Date: 20041129
  Serious: No
  Sender: FDA-Public Use
  Company Number: PHEH2003US10567

PATIENT
  Age: 77 Year
  Sex: Male

DRUGS (5)
  1. GLEEVEC [Suspect]
     Indication: CHRONIC MYELOID LEUKAEMIA
     Dosage: 300 MG, QD, ORAL
     Route: 048
     Dates: start: 20031103
  2. ZANTAC [Concomitant]
  3. INDERAL [Concomitant]
  4. FLOMAX [Concomitant]
  5. FERGON [Concomitant]

REACTIONS (2)
  - EYE SWELLING [None]
  - OEDEMA PERIPHERAL [None]
